FAERS Safety Report 8966080 (Version 2)
Quarter: 2012Q4

REPORT INFORMATION
  Report Type: 
  Country: TN (occurrence: TN)
  Receive Date: 20121217
  Receipt Date: 20121228
  Transmission Date: 20130627
  Serious: Yes (Death)
  Sender: FDA-Public Use
  Company Number: TN-SANOFI-AVENTIS-2012SA090338

PATIENT
  Age: 39 Year
  Sex: Male

DRUGS (4)
  1. CLOPIDOGREL BISULFATE [Suspect]
     Indication: UNSTABLE ANGINA
     Route: 048
     Dates: start: 20120312, end: 20120927
  2. CLOPIDOGREL BISULFATE [Suspect]
     Indication: STENT PLACEMENT
     Route: 048
     Dates: start: 20120312, end: 20120927
  3. BISOPROLOL [Concomitant]
     Route: 048
     Dates: start: 20120312, end: 20120927
  4. ATORVASTATIN [Concomitant]
     Route: 048
     Dates: start: 20120312, end: 20120927

REACTIONS (2)
  - Cardiac arrest [Fatal]
  - Myocardial infarction [Fatal]
